FAERS Safety Report 5187914-2 (Version None)
Quarter: 2006Q4

REPORT INFORMATION
  Report Type: 
  Country: None (occurrence: None)
  Receive Date: 20061221
  Receipt Date: 20061207
  Transmission Date: 20070319
  Serious: Yes (Other)
  Sender: FDA-Public Use
  Company Number: HQWYE586107DEC06

PATIENT
  Sex: Female

DRUGS (4)
  1. ENBREL [Suspect]
     Indication: RHEUMATOID ARTHRITIS
     Route: 058
     Dates: start: 20060928, end: 20061020
  2. TAKEPRON [Concomitant]
  3. ISCOTIN [Concomitant]
  4. VOLTAREN [Concomitant]
     Indication: RHEUMATOID ARTHRITIS

REACTIONS (4)
  - ALANINE AMINOTRANSFERASE INCREASED [None]
  - ASPARTATE AMINOTRANSFERASE INCREASED [None]
  - INTERSTITIAL LUNG DISEASE [None]
  - MYOSITIS [None]
